FAERS Safety Report 9431508 (Version 1)
Quarter: 2013Q3

REPORT INFORMATION
  Report Type: Spontaneous
  Country: JP (occurrence: JP)
  Receive Date: 20130730
  Receipt Date: 20130730
  Transmission Date: 20140515
  Serious: Yes (Other)
  Sender: FDA-Public Use
  Company Number: JP-MYLANLABS-2013S1016331

PATIENT
  Age: 30 Year
  Sex: Male

DRUGS (13)
  1. LEVOFLOXACIN [Suspect]
     Indication: URINARY TRACT INFECTION
     Dosage: 900 MG/DAY
     Route: 065
  2. WARFARIN [Interacting]
     Indication: CONGESTIVE CARDIOMYOPATHY
     Dosage: 4 MG/DAY
     Route: 065
  3. ASPIRIN [Concomitant]
     Dosage: 100 MG/DAY
     Route: 065
  4. DIGOXIN [Concomitant]
     Dosage: 0.25 MG/DAY
     Route: 065
  5. DIGOXIN [Concomitant]
     Dosage: 20 MG/DAY
     Route: 065
  6. ATENOLOL [Concomitant]
     Dosage: 50 MG/DAY
     Route: 065
  7. GLIMEPIRIDE [Concomitant]
     Dosage: 4 MG/DAY
     Route: 065
  8. VOGLIBOSE [Concomitant]
     Dosage: 2.7 MG/DAY
     Route: 065
  9. ALLOPURINOL [Concomitant]
     Dosage: 900 MG/DAY
     Route: 065
  10. MILNACIPRAN [Concomitant]
     Dosage: 25 MG/DAY
     Route: 065
  11. FLUVOXAMINE [Concomitant]
     Dosage: 200 MG/DAY
     Route: 065
  12. RISPERIDONE [Concomitant]
     Dosage: 2 MG/DAY
     Route: 065
  13. SODIUM VALPROATE [Concomitant]
     Indication: ASPERGER^S DISORDER
     Dosage: 800 MG/DAY
     Route: 065

REACTIONS (5)
  - Coagulopathy [Unknown]
  - Renal failure acute [Recovered/Resolved]
  - Drug interaction [Recovered/Resolved]
  - Epistaxis [Recovered/Resolved]
  - Hypovolaemic shock [Recovered/Resolved]
